FAERS Safety Report 7257780-X (Version None)
Quarter: 2011Q1

REPORT INFORMATION
  Report Type: 
  Country: None (occurrence: None)
  Receive Date: 20110129
  Receipt Date: 20100524
  Transmission Date: 20110831
  Serious: No
  Sender: FDA-Public Use
  Company Number: US-ABBOTT-10P-163-0647039-00

PATIENT
  Sex: Female
  Weight: 70.37 kg

DRUGS (2)
  1. HUMIRA [Suspect]
     Route: 058
     Dates: start: 20100518
  2. HUMIRA [Suspect]
     Indication: RHEUMATOID ARTHRITIS
     Route: 058
     Dates: start: 20080101, end: 20100101

REACTIONS (7)
  - APHASIA [None]
  - BRONCHITIS [None]
  - DYSPHAGIA [None]
  - SPUTUM DISCOLOURED [None]
  - RESPIRATORY TRACT CONGESTION [None]
  - LARYNGITIS [None]
  - PHARYNGITIS STREPTOCOCCAL [None]
